FAERS Safety Report 21224181 (Version 4)
Quarter: 2023Q2

REPORT INFORMATION
  Report Type: Other
  Country: GB (occurrence: None)
  Receive Date: 20220817
  Receipt Date: 20230511
  Transmission Date: 20230722
  Serious: Yes (Hospitalization)
  Sender: FDA-Public Use
  Company Number: GB-ROCHE-3160597

PATIENT
  Age: 61 Year
  Sex: Male

DRUGS (17)
  1. OCRELIZUMAB [Suspect]
     Active Substance: OCRELIZUMAB
     Indication: Relapsing-remitting multiple sclerosis
     Dosage: START DATE OF MOST RECENT DOSE OF STUDY DRUG PRIOR TO AE AND SAE 13/AUG/2019.?DOSE LAST STUDY DRUG A
     Route: 042
     Dates: start: 20190730, end: 20190730
  2. OCRELIZUMAB [Suspect]
     Active Substance: OCRELIZUMAB
     Dosage: SUBSEQUENT DOSE RECEIVED ON 11/AUG/2020, 10/AUG/2021, 09/FEB/2021, 25/OCT/2022, 15/FEB/2022, 02/MAY/
     Route: 042
     Dates: start: 20200127, end: 20200127
  3. AMITRIPTYLINE [Concomitant]
     Active Substance: AMITRIPTYLINE
     Route: 048
  4. BACLOFEN [Concomitant]
     Active Substance: BACLOFEN
     Route: 048
  5. IBUPROFEN [Concomitant]
     Active Substance: IBUPROFEN
  6. CODEINE PHOSPHATE [Concomitant]
     Active Substance: CODEINE PHOSPHATE
  7. METHYLPREDNISOLONE [Concomitant]
     Active Substance: METHYLPREDNISOLONE
     Dosage: SUBSEQUENT DOSE RECEIVED ON 02/MAY/2023
     Route: 042
     Dates: start: 20221025, end: 20221025
  8. ACETAMINOPHEN [Concomitant]
     Active Substance: ACETAMINOPHEN
     Dosage: SUBSEQUENT DOSE RECEIVED ON 02/MAY/2023
     Route: 048
     Dates: start: 20221025, end: 20221025
  9. CHLORPHENIRAMINE MALEATE [Concomitant]
     Active Substance: CHLORPHENIRAMINE MALEATE
     Dosage: SUBSEQUENT DOSE RECEIVED ON 02/MAY/2023
     Route: 048
     Dates: start: 20221025, end: 20221025
  10. OMEPRAZOLE [Concomitant]
     Active Substance: OMEPRAZOLE
     Dosage: SUBSEQUENT DOSE RECEIVED ON 02/MAY/2023
     Route: 048
     Dates: start: 20221025, end: 20221025
  11. DAPAGLIFLOZIN [Concomitant]
     Active Substance: DAPAGLIFLOZIN
     Route: 048
     Dates: start: 202206
  12. BISOPROLOL [Concomitant]
     Active Substance: BISOPROLOL
     Route: 048
     Dates: start: 202206
  13. ENTRESTO [Concomitant]
     Active Substance: SACUBITRIL\VALSARTAN
     Route: 048
     Dates: start: 202206
  14. FUROSEMIDE [Concomitant]
     Active Substance: FUROSEMIDE
     Route: 048
     Dates: start: 202206
  15. IVABRADINE [Concomitant]
     Active Substance: IVABRADINE
     Route: 048
     Dates: start: 202206
  16. POLYETHYLENE GLYCOL 3350\POTASSIUM CHLORIDE\SODIUM BICARBONATE\SODIUM [Concomitant]
     Active Substance: POLYETHYLENE GLYCOL 3350\POTASSIUM CHLORIDE\SODIUM BICARBONATE\SODIUM CHLORIDE
     Route: 048
     Dates: start: 2018
  17. EPLERENONE [Concomitant]
     Active Substance: EPLERENONE
     Route: 048
     Dates: start: 202206

REACTIONS (1)
  - Cardiac failure [Not Recovered/Not Resolved]

NARRATIVE: CASE EVENT DATE: 20220422
